FAERS Safety Report 8968249 (Version 2)
Quarter: 2012Q4

REPORT INFORMATION
  Report Type: 
  Country: US (occurrence: US)
  Receive Date: 20121218
  Receipt Date: 20121227
  Transmission Date: 20130627
  Serious: No
  Sender: FDA-Public Use
  Company Number: US-PFIZER INC-2012318066

PATIENT
  Sex: Male

DRUGS (1)
  1. RAMIPRIL [Suspect]
     Dosage: UNK
     Route: 065

REACTIONS (1)
  - Drug ineffective [Unknown]
